FAERS Safety Report 16577804 (Version 7)
Quarter: 2019Q4

REPORT INFORMATION
  Report Type: Report from Study
  Country: MX (occurrence: MX)
  Receive Date: 20190716
  Receipt Date: 20191105
  Transmission Date: 20200122
  Serious: Yes (Hospitalization)
  Sender: FDA-Public Use
  Company Number: PHHY2017MX105481

PATIENT
  Age: 59 Year
  Sex: Female
  Weight: 70 kg

DRUGS (16)
  1. GALVUS MET [Suspect]
     Active Substance: METFORMIN HYDROCHLORIDE\VILDAGLIPTIN
     Dosage: 1 DF (500 MG METFORMIN, 50 MG VILDAGLIPTIN), QD; TAKING 850 MG/50 MG WHEN GLUCOSE INCREASED
     Route: 048
  2. NORVASC [Suspect]
     Active Substance: AMLODIPINE BESYLATE
     Indication: HYPERTENSION
     Dosage: 5 MG, QHS (APPROXIMATELY ONE YEAR AGO)
     Route: 048
  3. RIOPAN [MAGALDRATE] [Suspect]
     Active Substance: MAGALDRATE
     Indication: ABDOMINAL DISCOMFORT
     Dosage: UNK
     Route: 048
  4. RIOPAN [MAGALDRATE] [Suspect]
     Active Substance: MAGALDRATE
     Indication: DYSPEPSIA
  5. CO-DIOVAN [Suspect]
     Active Substance: HYDROCHLOROTHIAZIDE\VALSARTAN
     Indication: HYPERTENSION
     Dosage: 1 DF (12.5 MG HYDROCHLORTHIAZIDE/160 MG VALSARTAN), QD, 3 YEARS AGO APPROXIMATELY
     Route: 048
  6. AMIKIN [Concomitant]
     Active Substance: AMIKACIN SULFATE
     Indication: PRODUCT USED FOR UNKNOWN INDICATION
     Route: 065
  7. ACETYLSALICYLIC ACID [Concomitant]
     Active Substance: ASPIRIN
     Indication: PRODUCT USED FOR UNKNOWN INDICATION
     Route: 065
  8. INSULEX [Concomitant]
     Indication: DIABETES MELLITUS
     Dosage: 25 DF, QD
     Route: 030
     Dates: start: 2015
  9. CILOPRIN [Concomitant]
     Indication: PRODUCT USED FOR UNKNOWN INDICATION
     Route: 065
  10. BUSCAPINA [Concomitant]
     Indication: PRODUCT USED FOR UNKNOWN INDICATION
     Route: 065
  11. MICARDISPLUS [Concomitant]
     Active Substance: HYDROCHLOROTHIAZIDE\TELMISARTAN
     Indication: PRODUCT USED FOR UNKNOWN INDICATION
     Dosage: UNK
     Route: 065
  12. GALVUS MET [Suspect]
     Active Substance: METFORMIN HYDROCHLORIDE\VILDAGLIPTIN
     Indication: DIABETES MELLITUS
     Dosage: 1 DF (850 MG METFORMIN, 50 MG VILDAGLIPTIN), QD; TAKING 850 MG/50 MG WHEN GLUCOSE INCREASED
     Route: 048
     Dates: start: 2013
  13. MICARDIS [Suspect]
     Active Substance: TELMISARTAN
     Indication: HYPERTENSION
     Dosage: 1 DF, BID (APPROXIMATELY THREE YEARS AGO) (BEFORE BREAKFAST)
     Route: 048
     Dates: start: 2016
  14. INSULIN [Concomitant]
     Active Substance: INSULIN NOS
     Indication: DIABETES MELLITUS
     Dosage: 20 U, UNK, 2 YEARS AGO APPROXIMATELY
     Route: 065
  15. PANCLASA [Concomitant]
     Indication: PRODUCT USED FOR UNKNOWN INDICATION
     Route: 065
  16. VYTORIN [Concomitant]
     Active Substance: EZETIMIBE\SIMVASTATIN
     Indication: PRODUCT USED FOR UNKNOWN INDICATION
     Route: 065

REACTIONS (18)
  - Dyspepsia [Not Recovered/Not Resolved]
  - Gastritis [Unknown]
  - Headache [Unknown]
  - Malaise [Unknown]
  - Abdominal pain upper [Not Recovered/Not Resolved]
  - Anger [Unknown]
  - Gastrointestinal disorder [Unknown]
  - Diarrhoea [Not Recovered/Not Resolved]
  - Eating disorder [Unknown]
  - Feeling abnormal [Unknown]
  - Blood pressure increased [Unknown]
  - Anxiety [Unknown]
  - Discomfort [Unknown]
  - Vomiting [Unknown]
  - Blood glucose increased [Unknown]
  - Abdominal discomfort [Not Recovered/Not Resolved]
  - Hypercoagulation [Unknown]
  - Blood glucose fluctuation [Not Recovered/Not Resolved]

NARRATIVE: CASE EVENT DATE: 20190917
